APPROVED DRUG PRODUCT: DEFERASIROX
Active Ingredient: DEFERASIROX
Strength: 90MG
Dosage Form/Route: TABLET;ORAL
Application: A209223 | Product #001
Applicant: TEVA PHARMACEUTICALS USA INC
Approved: Nov 25, 2019 | RLD: No | RS: No | Type: DISCN